FAERS Safety Report 19509424 (Version 1)
Quarter: 2021Q3

REPORT INFORMATION
  Report Type: Spontaneous
  Country: FR (occurrence: FR)
  Receive Date: 20210708
  Receipt Date: 20210708
  Transmission Date: 20211014
  Serious: Yes (Other)
  Sender: FDA-Public Use
  Company Number: NVSC2021FR149789

PATIENT
  Age: 51 Year
  Sex: Male

DRUGS (2)
  1. FYCOMPA [Concomitant]
     Active Substance: PERAMPANEL
     Indication: PRODUCT USED FOR UNKNOWN INDICATION
     Dosage: UNK
     Route: 065
     Dates: start: 2015, end: 2015
  2. TRILEPTAL [Suspect]
     Active Substance: OXCARBAZEPINE
     Indication: PARTIAL SEIZURES
     Dosage: 300 MG (START DATE: AROUND 2001)
     Route: 065
     Dates: start: 2001

REACTIONS (8)
  - Vomiting [Unknown]
  - Constipation [Unknown]
  - Headache [Unknown]
  - Myalgia [Unknown]
  - Weight increased [Unknown]
  - Epilepsy [Unknown]
  - Petit mal epilepsy [Unknown]
  - Muscle fatigue [Unknown]

NARRATIVE: CASE EVENT DATE: 2015
